FAERS Safety Report 12653148 (Version 1)
Quarter: 2016Q3

REPORT INFORMATION
  Report Type: Spontaneous
  Country: DE (occurrence: DE)
  Receive Date: 20160815
  Receipt Date: 20160815
  Transmission Date: 20161109
  Serious: Yes (Hospitalization, Other)
  Sender: FDA-Public Use
  Company Number: DE-PFIZER INC-2016380456

PATIENT
  Sex: Male
  Weight: 3.3 kg

DRUGS (5)
  1. SERTRALINE HCL [Suspect]
     Active Substance: SERTRALINE HYDROCHLORIDE
     Indication: ANXIETY DISORDER
     Dosage: 50 MG, 1X/DAY, 0-36.6 GESTATIONAL WEEK
     Route: 064
     Dates: start: 20150120, end: 20151005
  2. FOLIO [Concomitant]
     Active Substance: FOLIC ACID
     Indication: PROPHYLAXIS OF NEURAL TUBE DEFECT
     Dosage: 0.4 MG, 1X/DAY, 0 - 36.6 GESTATIONAL WEEK
     Route: 064
     Dates: start: 20150120, end: 20151005
  3. COLECALCIFEROL [Concomitant]
     Active Substance: CHOLECALCIFEROL
     Indication: VITAMIN D DEFICIENCY
     Dosage: 1000 IU, 1X/DAY, 6.3 - 36.6 GESTATIONAL WEEK
     Route: 064
     Dates: start: 20150306, end: 20151005
  4. NEUREXAN [Concomitant]
     Active Substance: HOMEOPATHICS
     Indication: RESTLESSNESS
     Dosage: ON DEMAND, 0 - 36.6 GESTATIONAL WEEK
     Route: 064
     Dates: start: 20150120, end: 20151005
  5. PRESINOL [Suspect]
     Active Substance: METHYLDOPA
     Indication: HYPERTENSION
     Dosage: 125 MG, 2X/DAY, 0-36.6 GESTATIONAL WEEK
     Route: 064
     Dates: start: 20150120, end: 20151005

REACTIONS (8)
  - Oxygen saturation decreased [Recovered/Resolved]
  - Pyelocaliectasis [Unknown]
  - Respiratory disorder neonatal [Recovered/Resolved]
  - Infantile apnoea [Recovered/Resolved]
  - Developmental hip dysplasia [Unknown]
  - Maternal exposure during pregnancy [Recovered/Resolved]
  - Hypoglycaemia neonatal [Recovered/Resolved]
  - Premature baby [Unknown]

NARRATIVE: CASE EVENT DATE: 20151005
